FAERS Safety Report 11637850 (Version 1)
Quarter: 2015Q4

REPORT INFORMATION
  Report Type: Report from Study
  Country: FR (occurrence: FR)
  Receive Date: 20151016
  Receipt Date: 20151016
  Transmission Date: 20160304
  Serious: Yes (Hospitalization, Other)
  Sender: FDA-Public Use
  Company Number: FR-BRISTOL-MYERS SQUIBB COMPANY-21309059

PATIENT
  Age: 54 Year
  Sex: Female
  Weight: 75 kg

DRUGS (4)
  1. SOFOSBUVIR [Suspect]
     Active Substance: SOFOSBUVIR
     Indication: HEPATITIS C
     Dosage: 400 MG, QD
     Route: 048
     Dates: start: 20140418, end: 20140813
  2. DACLATASVIR DIHYDROCHLORIDE [Suspect]
     Active Substance: DACLATASVIR DIHYDROCHLORIDE
     Indication: HEPATITIS C
     Dosage: 60 MG, QD
     Route: 048
     Dates: start: 20140519, end: 20140813
  3. PAROXETINE [Concomitant]
     Active Substance: PAROXETINE\PAROXETINE HYDROCHLORIDE
     Indication: DEPRESSION
     Dosage: 20 MG, UNK
     Route: 065
     Dates: end: 2014
  4. ESCITALOPRAM [Concomitant]
     Active Substance: ESCITALOPRAM OXALATE
     Indication: PRODUCT USED FOR UNKNOWN INDICATION
     Dosage: UNK
     Route: 065
     Dates: start: 2014

REACTIONS (8)
  - Insomnia [Not Recovered/Not Resolved]
  - Sepsis [Recovered/Resolved]
  - Ascites [Recovered/Resolved]
  - Hepatocellular carcinoma [Recovered/Resolved]
  - Skin lesion [Not Recovered/Not Resolved]
  - Abdominal pain [Recovered/Resolved]
  - Oedema [Recovered/Resolved]
  - Polypectomy [Recovered/Resolved]

NARRATIVE: CASE EVENT DATE: 20140526
